FAERS Safety Report 6874729-X (Version None)
Quarter: 2010Q3

REPORT INFORMATION
  Report Type: 
  Country: None (occurrence: None)
  Receive Date: 20100723
  Receipt Date: 20100709
  Transmission Date: 20110219
  Serious: Yes (Other)
  Sender: FDA-Public Use
  Company Number: TRP_07127_2010

PATIENT

DRUGS (1)
  1. AMPHOTEC (AMPHOTEC - AMPHOTERICIN B)(NOT SPECIFIED) [Suspect]
     Indication: PRODUCT USED FOR UNKNOWN INDICATION
     Dosage: 3 BOTTLES VIALS TOTAL;

REACTIONS (1)
  - CYANOSIS [None]
